FAERS Safety Report 6208208-X (Version None)
Quarter: 2009Q2

REPORT INFORMATION
  Report Type: 
  Country: None (occurrence: None)
  Receive Date: 20090529
  Receipt Date: 20090520
  Transmission Date: 20091009
  Serious: Yes (Hospitalization)
  Sender: FDA-Public Use
  Company Number: US-BRISTOL-MYERS SQUIBB COMPANY-14622690

PATIENT
  Age: 58 Year
  Sex: Male
  Weight: 71 kg

DRUGS (3)
  1. CETUXIMAB [Suspect]
     Indication: TRANSITIONAL CELL CARCINOMA
     Dosage: GIVEN ONCE ON DAY1.
     Route: 042
     Dates: start: 20090428, end: 20090428
  2. CISPLATIN [Suspect]
     Indication: TRANSITIONAL CELL CARCINOMA
     Dosage: GIVEN ONCE ON DAY1.
     Route: 042
     Dates: start: 20090428, end: 20090428
  3. GEMCITABINE [Suspect]
     Indication: TRANSITIONAL CELL CARCINOMA
     Dosage: GIVEN ON DAY1.
     Route: 042
     Dates: start: 20090428, end: 20090428

REACTIONS (5)
  - ANOREXIA [None]
  - DYSPHAGIA [None]
  - NAUSEA [None]
  - PAIN [None]
  - VOMITING [None]
